FAERS Safety Report 11485988 (Version 2)
Quarter: 2015Q3

REPORT INFORMATION
  Report Type: Spontaneous
  Country: DE (occurrence: DE)
  Receive Date: 20150909
  Receipt Date: 20150922
  Transmission Date: 20151125
  Serious: Yes (Other)
  Sender: FDA-Public Use
  Company Number: DE-DEP_12595_2015

PATIENT
  Age: 77 Year
  Sex: Female
  Weight: 55 kg

DRUGS (17)
  1. TRAZODON - TRAZODONE HYDROCHLORIDE [Concomitant]
     Dosage: 100 MG (1 FOR THE NIGHT)
  2. BECLOMETHASONE - BECLOMETHASONE DIPROPIONATE [Concomitant]
     Dosage: 0.5 DA (0.5 IN THE MORNING, 0.5 IN THE EVENING)
  3. LYRICA - PREGABALIN [Concomitant]
     Dosage: 75 MG - 50 MG - 75 MG
  4. LORAZEPAM. [Concomitant]
     Active Substance: LORAZEPAM
     Dosage: 1 MG (0.5 MG IN THE MORNING, 0.5 MG IN THE EVENING)
  5. MACROGOL [Concomitant]
     Active Substance: POLYETHYLENE GLYCOLS
     Dosage: DF, 1 SACHET IN THE MORNING
  6. DIGIMERCK - DIGITOXIN [Concomitant]
     Dosage: 0.07 (1 DF IN THE MORNING)
  7. NOVAMINSULFON - METAMIZOLE SODIUM [Concomitant]
     Indication: PAIN
     Dosage: 20 DROPS, MAX 120 DROPS/24 H
  8. PHENPROCOUMON [Concomitant]
     Active Substance: PHENPROCOUMON
     Dosage: 2 TABLETS TODAY, TOMORROW 1 TABLET, AFTER THAT ACCORDING TO QUICK^S VALUE
  9. VERAPAMIL [Concomitant]
     Active Substance: VERAPAMIL HYDROCHLORIDE
     Dosage: 1 TABLET IN THE MORNING, 0.5 TABLET IN THE EVENING
  10. PREDNISOLON - PREDNISOLONE [Concomitant]
     Dosage: 10 MG (0.75 IN THE MORNING)
  11. PALEXIA [Suspect]
     Active Substance: TAPENTADOL HYDROCHLORIDE
     Indication: PRODUCT USED FOR UNKNOWN INDICATION
     Route: 048
  12. FORADIL - FORMOTEROL FUMARATE [Concomitant]
     Dosage: IN THE MORNING AND IN THE EVENING
  13. CLEXANE - ENOXAPARIN SODIUM [Concomitant]
  14. BERODUAL - FENOTEROL HYDROBROMIDE/ IPRATROPIUMBROMIDE [Concomitant]
     Dosage: DF PRN
  15. ZOPICLON - ZOPICLONE [Concomitant]
     Dosage: 3.75 (1 TABLET FOR THE NIGHT),
  16. SPIRONOLACTON - SPIRONOLACTONE [Concomitant]
     Dosage: 50 (0.5 DF IN THE MORNING)
  17. SPIRIVA - TIOTROPIUM BROMIDE [Concomitant]
     Dosage: DF, IN THE MORNING

REACTIONS (1)
  - Urinary retention [Recovered/Resolved]

NARRATIVE: CASE EVENT DATE: 20150624
